FAERS Safety Report 22103125 (Version 1)
Quarter: 2023Q1

REPORT INFORMATION
  Report Type: Spontaneous
  Country: US (occurrence: US)
  Receive Date: 20230316
  Receipt Date: 20230316
  Transmission Date: 20230417
  Serious: No
  Sender: FDA-Public Use
  Company Number: US-AMGEN-USASP2023044767

PATIENT

DRUGS (3)
  1. ENBREL [Suspect]
     Active Substance: ETANERCEPT
     Indication: Arthritis
     Dosage: UNK
     Route: 065
  2. ENBREL [Suspect]
     Active Substance: ETANERCEPT
     Indication: Off label use
  3. TREMFYA [Concomitant]
     Active Substance: GUSELKUMAB
     Dosage: UNK
     Route: 065

REACTIONS (2)
  - Off label use [Unknown]
  - Injection site pain [Unknown]
